FAERS Safety Report 8876713 (Version 2)
Quarter: 2013Q3

REPORT INFORMATION
  Report Type: Spontaneous
  Country: US (occurrence: US)
  Receive Date: 20121029
  Receipt Date: 20130904
  Transmission Date: 20140515
  Serious: Yes (Hospitalization)
  Sender: FDA-Public Use
  Company Number: US-ABBOTT-12P-163-0999160-00

PATIENT
  Age: 31 Year
  Sex: Female
  Weight: 88.08 kg

DRUGS (7)
  1. VICODIN [Suspect]
     Indication: ARTHRALGIA
     Route: 048
     Dates: start: 2008, end: 20120906
  2. VICODIN [Suspect]
     Dates: start: 20120909
  3. TOFACITINIB CITRATE [Suspect]
     Indication: RHEUMATOID ARTHRITIS
     Route: 048
     Dates: start: 20120106, end: 20120807
  4. TOFACITINIB CITRATE [Suspect]
  5. METHOTREXATE SODIUM [Concomitant]
     Indication: RHEUMATOID ARTHRITIS
     Dates: start: 200205, end: 20120906
  6. METHOTREXATE SODIUM [Concomitant]
     Dates: start: 20120909
  7. NEXIUM [Concomitant]
     Indication: PRODUCT USED FOR UNKNOWN INDICATION

REACTIONS (1)
  - Abdominal pain [Recovered/Resolved]
